FAERS Safety Report 12907316 (Version 1)
Quarter: 2016Q4

REPORT INFORMATION
  Report Type: Report from Study
  Country: GB (occurrence: GB)
  Receive Date: 20161103
  Receipt Date: 20161103
  Transmission Date: 20170207
  Serious: Yes (Life-Threatening)
  Sender: FDA-Public Use
  Company Number: GB-JNJFOC-20160906588

PATIENT
  Age: 52 Year
  Sex: Female

DRUGS (1)
  1. SIMPONI [Suspect]
     Active Substance: GOLIMUMAB
     Indication: PRODUCT USED FOR UNKNOWN INDICATION
     Route: 058

REACTIONS (6)
  - Suicidal ideation [Unknown]
  - Blood pressure increased [Unknown]
  - Agoraphobia [Unknown]
  - Stress [Unknown]
  - Drug dose omission [Unknown]
  - Epistaxis [Unknown]

NARRATIVE: CASE EVENT DATE: 201609
